FAERS Safety Report 9983357 (Version 2)
Quarter: 2014Q1

REPORT INFORMATION
  Report Type: Report from Study
  Country: US (occurrence: US)
  Receive Date: 20140307
  Receipt Date: 20140307
  Transmission Date: 20141002
  Serious: Yes (Hospitalization, Other)
  Sender: FDA-Public Use
  Company Number: US-TAKEDA-2014TUS001346

PATIENT
  Age: 84 Year
  Sex: Male
  Weight: 97 kg

DRUGS (20)
  1. BLINDED ALLOPURINOL [Suspect]
     Indication: HYPERURICAEMIA
     Dosage: UNK, QD
     Route: 048
     Dates: start: 20140221
  2. BLINDED FEBUXOSTAT [Suspect]
     Indication: HYPERURICAEMIA
     Dosage: UNK, QD
     Route: 048
     Dates: start: 20140221
  3. COLCHICINE [Concomitant]
     Indication: GOUT
     Dosage: 0.6 MG, DAILY
     Dates: start: 20140213
  4. VICODIN [Concomitant]
     Indication: BACK PAIN
     Dosage: 5/325 MG, PRN
     Route: 048
     Dates: start: 2007
  5. PRAMIPEXOLE [Concomitant]
     Indication: RESTLESS LEGS SYNDROME
     Dosage: 0.125 MG, PRN
     Route: 048
     Dates: start: 201307
  6. ATORVASTATIN [Concomitant]
     Indication: HYPERLIPIDAEMIA
     Dosage: 80 MG, QD
     Route: 048
     Dates: start: 2005
  7. LASIX                              /00032601/ [Concomitant]
     Indication: CARDIAC FAILURE CONGESTIVE
     Dosage: 40 MG, BID
     Route: 048
     Dates: start: 2012
  8. ASPIRIN [Concomitant]
     Indication: CARDIOVASCULAR EVENT PROPHYLAXIS
     Dosage: 81 MG, QD
     Route: 048
     Dates: start: 1995
  9. LOSARTAN [Concomitant]
     Indication: CARDIOVASCULAR EVENT PROPHYLAXIS
     Dosage: 25 MG, QD
     Route: 048
     Dates: start: 2005
  10. POTASSIUM [Concomitant]
     Indication: CARDIAC FAILURE CONGESTIVE
     Dosage: 15 ML, QD
     Route: 048
     Dates: start: 2012
  11. ATENOLOL [Concomitant]
     Indication: HYPERTENSION
     Dosage: 25 MG, QD
     Route: 048
     Dates: start: 2005
  12. DONNATAL [Concomitant]
     Indication: ABDOMINAL PAIN
     Dosage: 16.2 MG, PRN
     Route: 048
     Dates: start: 2004
  13. GABAPENTIN [Concomitant]
     Indication: NEUROPATHY PERIPHERAL
     Dosage: 300 MG, QD
     Route: 048
     Dates: start: 2013
  14. GLIPIZIDE [Concomitant]
     Indication: TYPE 2 DIABETES MELLITUS
     Dosage: 5 MG, QD
     Route: 048
     Dates: start: 2012
  15. ALEVE [Concomitant]
     Indication: OSTEOARTHRITIS
     Dosage: 220 MG, BID
     Route: 048
     Dates: start: 2010
  16. LECITHIN [Concomitant]
     Indication: HYPERLIPIDAEMIA
     Dosage: 1200 MG, QD
     Route: 048
     Dates: start: 2000
  17. ZINC [Concomitant]
     Indication: NUTRITIONAL SUPPLEMENTATION
     Dosage: 50 MG, QD
     Route: 048
     Dates: start: 2005
  18. PANTOTHENIC ACID [Concomitant]
     Indication: NUTRITIONAL SUPPLEMENTATION
     Dosage: 500 MG, QD
     Route: 048
     Dates: start: 2012
  19. GLUCOSAMINE [Concomitant]
     Indication: OSTEOARTHRITIS
     Dosage: 2000 MG, BID
     Route: 048
     Dates: start: 2010
  20. OMEPRAZOLE [Concomitant]
     Indication: GASTROOESOPHAGEAL REFLUX DISEASE
     Dosage: 40 MG, QD
     Route: 048
     Dates: start: 2013

REACTIONS (1)
  - Cardiac failure congestive [Not Recovered/Not Resolved]
